FAERS Safety Report 9826132 (Version 1)
Quarter: 2013Q4

REPORT INFORMATION
  Report Type: Spontaneous
  Country: CH (occurrence: None)
  Receive Date: 20131112
  Receipt Date: 20131112
  Transmission Date: 20140711
  Serious: No
  Sender: FDA-Public Use
  Company Number: 2013-01088

PATIENT
  Age: 58 Year
  Sex: Female

DRUGS (2)
  1. LISINOPRIL (UNKNOWN) (LISINOPRIL) [Suspect]
     Indication: HYPERTENSION
  2. EVEROLIMUS (UNKNOWN) [Suspect]
     Indication: METASTATIC RENAL CELL CARCINOMA

REACTIONS (2)
  - Angioedema [None]
  - Drug interaction [None]
